FAERS Safety Report 11816399 (Version 3)
Quarter: 2016Q1

REPORT INFORMATION
  Report Type: Report from Study
  Country: DE (occurrence: DE)
  Receive Date: 20151209
  Receipt Date: 20160229
  Transmission Date: 20160525
  Serious: Yes (Life-Threatening, Hospitalization, Other)
  Sender: FDA-Public Use
  Company Number: DE-ABBVIE-15K-062-1512870-00

PATIENT
  Sex: Male

DRUGS (2)
  1. HUMIRA [Suspect]
     Active Substance: ADALIMUMAB
     Indication: PSORIASIS
     Route: 058
     Dates: start: 20150611, end: 201512
  2. HUMIRA [Suspect]
     Active Substance: ADALIMUMAB
     Route: 058
     Dates: start: 20160218

REACTIONS (6)
  - Syncope [Unknown]
  - Procedural complication [Not Recovered/Not Resolved]
  - Tachycardia [Unknown]
  - Cardiovascular disorder [Not Recovered/Not Resolved]
  - Coronary artery disease [Unknown]
  - Fatigue [Unknown]

NARRATIVE: CASE EVENT DATE: 2015
